FAERS Safety Report 18970341 (Version 3)
Quarter: 2022Q4

REPORT INFORMATION
  Report Type: Spontaneous
  Country: US (occurrence: US)
  Receive Date: 20210304
  Receipt Date: 20221215
  Transmission Date: 20230112
  Serious: Yes (Other)
  Sender: FDA-Public Use
  Company Number: US-PFIZER INC-2021223016

PATIENT
  Age: 74 Year
  Sex: Female
  Weight: 81.65 kg

DRUGS (3)
  1. SOMAVERT [Suspect]
     Active Substance: PEGVISOMANT
     Indication: Acromegaly
     Dosage: 10 MG, 1X/DAY
     Dates: start: 20151109
  2. SOMAVERT [Suspect]
     Active Substance: PEGVISOMANT
     Dosage: 10 MG, 1X/DAY
     Route: 058
  3. LEVOTHYROXINE [Concomitant]
     Active Substance: LEVOTHYROXINE
     Indication: Thyroid disorder
     Dosage: 125 UG, 1X/DAY

REACTIONS (5)
  - Cataract [Unknown]
  - Macular degeneration [Not Recovered/Not Resolved]
  - Hypoacusis [Unknown]
  - Visual impairment [Not Recovered/Not Resolved]
  - Intentional product misuse [Unknown]
